FAERS Safety Report 22643972 (Version 2)
Quarter: 2023Q2

REPORT INFORMATION
  Report Type: Spontaneous
  Country: PR (occurrence: PR)
  Receive Date: 20230627
  Receipt Date: 20230628
  Transmission Date: 20230722
  Serious: No
  Sender: FDA-Public Use
  Company Number: PR-PFIZER INC-202300226766

PATIENT
  Age: 16 Year
  Sex: Male
  Weight: 63.5 kg

DRUGS (3)
  1. GENOTROPIN [Suspect]
     Active Substance: SOMATROPIN
     Indication: Blood growth hormone decreased
     Dosage: 2.6 MG
     Route: 058
     Dates: start: 20230612
  2. SEROQUEL XR [Concomitant]
     Active Substance: QUETIAPINE FUMARATE
     Dosage: 300 MG
  3. ZOLOFT [Concomitant]
     Active Substance: SERTRALINE HYDROCHLORIDE
     Dosage: 100 MG

REACTIONS (6)
  - Drug dose omission by device [Unknown]
  - Device breakage [Unknown]
  - Product packaging quantity issue [Unknown]
  - Accidental exposure to product [Unknown]
  - Exposure via skin contact [Unknown]
  - Device expulsion [Unknown]

NARRATIVE: CASE EVENT DATE: 20230101
